FAERS Safety Report 17666879 (Version 1)
Quarter: 2020Q2

REPORT INFORMATION
  Report Type: Spontaneous
  Country: US (occurrence: US)
  Receive Date: 20200414
  Receipt Date: 20200414
  Transmission Date: 20200713
  Serious: No
  Sender: FDA-Public Use
  Company Number: US-JAZZ-2020-US-001805

PATIENT
  Sex: Female

DRUGS (47)
  1. ESCITALOPRAM [Concomitant]
     Active Substance: ESCITALOPRAM OXALATE
  2. FLUDROCORTISONE [Concomitant]
     Active Substance: FLUDROCORTISONE
  3. FAMOTIDINE. [Concomitant]
     Active Substance: FAMOTIDINE
  4. ONDANSETRON HCL [Concomitant]
     Active Substance: ONDANSETRON HYDROCHLORIDE
  5. METOPROLOL SUCCINATE. [Concomitant]
     Active Substance: METOPROLOL SUCCINATE
  6. RANITIDINE HCL [Concomitant]
     Active Substance: RANITIDINE HYDROCHLORIDE
  7. TOPIRAMATE. [Concomitant]
     Active Substance: TOPIRAMATE
  8. PROPRANOLOL [Concomitant]
     Active Substance: PROPRANOLOL HYDROCHLORIDE
  9. OMEPRAZOLE. [Concomitant]
     Active Substance: OMEPRAZOLE
  10. PROBIOTIC 10 [Concomitant]
     Active Substance: DIETARY SUPPLEMENT\PROBIOTICS
  11. ALPRAZOLAM ER [Concomitant]
     Active Substance: ALPRAZOLAM
  12. VICODIN [Concomitant]
     Active Substance: ACETAMINOPHEN\HYDROCODONE BITARTRATE
  13. YAZ [Concomitant]
     Active Substance: DROSPIRENONE\ETHINYL ESTRADIOL
  14. XYREM [Concomitant]
     Active Substance: SODIUM OXYBATE
     Indication: CATAPLEXY
     Dosage: 4.5 UNK, BID
     Dates: start: 201005
  15. AVELOX [Concomitant]
     Active Substance: MOXIFLOXACIN HYDROCHLORIDE
  16. SINGULAIR [Concomitant]
     Active Substance: MONTELUKAST SODIUM
  17. OXYCODONE HYDROCHLORIDE. [Concomitant]
     Active Substance: OXYCODONE HYDROCHLORIDE
  18. ZYRTEC [Concomitant]
     Active Substance: CETIRIZINE HYDROCHLORIDE
  19. FLONASE ALLERGY RELIEF [Concomitant]
     Active Substance: FLUTICASONE PROPIONATE
  20. CARAFATE [Concomitant]
     Active Substance: SUCRALFATE
  21. CEFDINIR. [Concomitant]
     Active Substance: CEFDINIR
  22. DICYCLOMINE CO [Concomitant]
  23. CLARITIN ALLERGIC [Concomitant]
     Active Substance: OXYMETAZOLINE HYDROCHLORIDE
  24. DRYSOL [Concomitant]
     Active Substance: ALUMINUM CHLORIDE
  25. LANSOPRAZOLE. [Concomitant]
     Active Substance: LANSOPRAZOLE
  26. NECON 10/11 [Concomitant]
     Active Substance: ETHINYL ESTRADIOL\NORETHINDRONE
  27. TOPROL XL [Concomitant]
     Active Substance: METOPROLOL SUCCINATE
  28. ADDERALL [Concomitant]
     Active Substance: AMPHETAMINE ASPARTATE\AMPHETAMINE SULFATE\DEXTROAMPHETAMINE SACCHARATE\DEXTROAMPHETAMINE SULFATE
  29. MORPHINE SULFATE AND DEXTROSE [Concomitant]
     Active Substance: MORPHINE SULFATE
  30. PENTASA [Concomitant]
     Active Substance: MESALAMINE
  31. CHOLESTYRAMINE. [Concomitant]
     Active Substance: CHOLESTYRAMINE
  32. ADVAIR HFA [Concomitant]
     Active Substance: FLUTICASONE PROPIONATE\SALMETEROL XINAFOATE
  33. VITAMIN D2 [Concomitant]
     Active Substance: ERGOCALCIFEROL
  34. SUNOSI [Suspect]
     Active Substance: SOLRIAMFETOL
     Indication: PRODUCT USED FOR UNKNOWN INDICATION
     Dosage: UNK
  35. RESTASIS [Concomitant]
     Active Substance: CYCLOSPORINE
  36. FLAGYL [Concomitant]
     Active Substance: METRONIDAZOLE\METRONIDAZOLE HYDROCHLORIDE
  37. KRILL OIL [Concomitant]
     Active Substance: DIETARY SUPPLEMENT\KRILL OIL
  38. MULTI-VITAMINS VITAFIT [Concomitant]
     Active Substance: VITAMINS
  39. VERAPAMIL [Concomitant]
     Active Substance: VERAPAMIL HYDROCHLORIDE
  40. XYREM [Concomitant]
     Active Substance: SODIUM OXYBATE
     Indication: NARCOLEPSY
     Dosage: 2.25 GRAM, BID
     Route: 048
     Dates: start: 201004, end: 201005
  41. ALPRAZOLAM. [Concomitant]
     Active Substance: ALPRAZOLAM
  42. NORETHINDRONE ACETATE. [Concomitant]
     Active Substance: NORETHINDRONE ACETATE
  43. METOPROLOL. [Concomitant]
     Active Substance: METOPROLOL
  44. CLINDAMYCIN PHOSPHATE. [Concomitant]
     Active Substance: CLINDAMYCIN PHOSPHATE
  45. RITALIN [Concomitant]
     Active Substance: METHYLPHENIDATE HYDROCHLORIDE
  46. VITAMIN B12 [Concomitant]
     Active Substance: CYANOCOBALAMIN
  47. VITAMIN D3 [Concomitant]
     Active Substance: CHOLECALCIFEROL

REACTIONS (1)
  - Dizziness [Unknown]
